FAERS Safety Report 11491465 (Version 3)
Quarter: 2015Q4

REPORT INFORMATION
  Report Type: Spontaneous
  Country: PT (occurrence: PT)
  Receive Date: 20150910
  Receipt Date: 20151217
  Transmission Date: 20160304
  Serious: Yes (Other)
  Sender: FDA-Public Use
  Company Number: PT-TEVA-590805ISR

PATIENT
  Age: 41 Year
  Sex: Female

DRUGS (4)
  1. DOCETAXEL ACTAVIS [Suspect]
     Active Substance: DOCETAXEL
     Indication: BREAST CANCER
     Dosage: WE PERFORMED A 27.4.2015 DAY CYCLE AT A DOSE OF 120MG / M2 EVERY THREE WEEKS, LOT NO. 4GL0024.
     Route: 042
     Dates: start: 20150312
  2. ORADEXON [Concomitant]
     Active Substance: DEXAMETHASONE
     Indication: ALLERGY PROPHYLAXIS
     Dosage: 20 MILLIGRAM DAILY; AS PART OF THE PRE-MEDICATION SCHEME.
     Route: 042
     Dates: start: 20150312, end: 20150312
  3. ONDANSETROM [Concomitant]
     Indication: ALLERGY PROPHYLAXIS
     Dosage: 8 MILLIGRAM DAILY; AS PART OF THE PRE-MEDICATION SCHEME.
     Route: 042
     Dates: start: 20150312, end: 20150312
  4. EPIRRUBICINA TEVA [Suspect]
     Active Substance: EPIRUBICIN
     Indication: BREAST CANCER
     Dosage: TREATMENT CYCLE PERFORMED IN DOCETAXEL.
     Route: 042
     Dates: start: 20150427, end: 20150427

REACTIONS (10)
  - Skin lesion [Unknown]
  - Injection site discolouration [Unknown]
  - Injection site pruritus [Unknown]
  - Injection site erythema [Unknown]
  - Injection site pruritus [Unknown]
  - Injection site exfoliation [Unknown]
  - Injection site erythema [Unknown]
  - Injection site discolouration [Unknown]
  - Injection site pain [Unknown]
  - Injection site exfoliation [Unknown]

NARRATIVE: CASE EVENT DATE: 20150319
